FAERS Safety Report 7377709-3 (Version None)
Quarter: 2011Q1

REPORT INFORMATION
  Report Type: 
  Country: None (occurrence: None)
  Receive Date: 20110328
  Receipt Date: 20110323
  Transmission Date: 20110831
  Serious: Yes (Other)
  Sender: FDA-Public Use
  Company Number: JP-GENZYME-FLUD-1000852

PATIENT
  Age: 18 Year
  Sex: Female

DRUGS (16)
  1. METHOTREXATE [Concomitant]
     Indication: PROPHYLAXIS AGAINST GRAFT VERSUS HOST DISEASE
     Dosage: 10 MG/M2, QD ON DAY 1
     Route: 065
  2. SULFAMETHOXAZOLE W [Concomitant]
     Indication: ANTIFUNGAL PROPHYLAXIS
     Dosage: UNK
     Route: 065
  3. ATG-FRESENIUS [Suspect]
     Indication: APLASTIC ANAEMIA
  4. CYCLOPHOSPHAMIDE [Suspect]
     Indication: STEM CELL TRANSPLANT
     Dosage: 25 MG/KG, QD FROM DAY -6 TO DAY -3
     Route: 065
  5. LEVOFLOXACIN [Concomitant]
     Indication: ANTIFUNGAL PROPHYLAXIS
     Dosage: UNK
     Route: 065
  6. FILGRASTIM [Concomitant]
     Indication: NEUTROPENIA
     Dosage: 300 MCG, QD
     Route: 065
  7. FLUCONAZOLE [Concomitant]
     Indication: ANTIFUNGAL PROPHYLAXIS
     Dosage: UNK
  8. ACYCLOVIR SODIUM [Concomitant]
     Dosage: 200 MG, QD
     Route: 065
  9. CYCLOSPORINE [Concomitant]
     Indication: PROPHYLAXIS AGAINST GRAFT VERSUS HOST DISEASE
     Dosage: 3 MG/KG, QD FROM DAY -1
     Route: 042
  10. FLUDARA [Suspect]
     Indication: STEM CELL TRANSPLANT
     Dosage: 30 MG/M2, QD FROM DAY -6  TO DAY -3
     Route: 065
  11. CYCLOPHOSPHAMIDE [Suspect]
     Indication: APLASTIC ANAEMIA
  12. CYCLOSPORINE [Concomitant]
     Route: 048
  13. METHOTREXATE [Concomitant]
     Dosage: 7 MG/M2, ON DAY -3 AND 6
     Route: 065
  14. ACYCLOVIR SODIUM [Concomitant]
     Indication: PRODUCT USED FOR UNKNOWN INDICATION
     Dosage: 1000 MG/DAY FROM DAY -7 TO 35
     Route: 065
  15. FLUDARA [Suspect]
     Indication: APLASTIC ANAEMIA
  16. ATG-FRESENIUS [Suspect]
     Indication: STEM CELL TRANSPLANT
     Dosage: 5 MG/KG, QD FROMDAY -7 TO DAY -3
     Route: 065

REACTIONS (1)
  - CHRONIC GRAFT VERSUS HOST DISEASE [None]
